FAERS Safety Report 10577950 (Version 1)
Quarter: 2014Q4

REPORT INFORMATION
  Report Type: Spontaneous
  Country: US (occurrence: US)
  Receive Date: 20141112
  Receipt Date: 20141112
  Transmission Date: 20150529
  Serious: No
  Sender: FDA-Public Use
  Company Number: US-ASTRAZENECA-2014SE77342

PATIENT
  Age: 29604 Day
  Sex: Male
  Weight: 67.1 kg

DRUGS (1)
  1. ENTOCORT EC [Suspect]
     Active Substance: BUDESONIDE
     Indication: DIARRHOEA
     Route: 048
     Dates: start: 20141009

REACTIONS (2)
  - Intentional product misuse [Unknown]
  - Muscle spasms [Unknown]

NARRATIVE: CASE EVENT DATE: 20141009
